FAERS Safety Report 23243248 (Version 2)
Quarter: 2024Q1

REPORT INFORMATION
  Report Type: Report from Study
  Country: US (occurrence: US)
  Receive Date: 20231130
  Receipt Date: 20240131
  Transmission Date: 20240410
  Serious: Yes (Other)
  Sender: FDA-Public Use
  Company Number: US-ALXN-A202306814AA

PATIENT
  Age: 68 Year
  Sex: Female

DRUGS (5)
  1. STRENSIQ [Suspect]
     Active Substance: ASFOTASE ALFA
     Indication: Hypophosphatasia
     Dosage: UNK
     Route: 065
  2. HYDROXYCHLOROQUINE [Suspect]
     Active Substance: HYDROXYCHLOROQUINE
     Indication: Musculoskeletal stiffness
     Dosage: UNK, BID
     Route: 065
  3. HYDROXYCHLOROQUINE [Suspect]
     Active Substance: HYDROXYCHLOROQUINE
     Dosage: 200 MG, QD
     Route: 065
  4. NAPROXEN [Suspect]
     Active Substance: NAPROXEN
     Indication: Radicular pain
     Dosage: 500 MG, QD
     Route: 065
  5. METHOTREXATE [Concomitant]
     Active Substance: METHOTREXATE
     Indication: Product used for unknown indication
     Dosage: UNK
     Route: 065

REACTIONS (22)
  - Blindness [Recovered/Resolved]
  - Transient ischaemic attack [Unknown]
  - Urticaria [Unknown]
  - Arthritis [Unknown]
  - Injection site haemorrhage [Unknown]
  - Back pain [Unknown]
  - White blood cell count decreased [Unknown]
  - Heart valve incompetence [Unknown]
  - Vitamin B6 decreased [Recovering/Resolving]
  - Eye disorder [Unknown]
  - Spinal pain [Recovering/Resolving]
  - Musculoskeletal stiffness [Recovering/Resolving]
  - Renal disorder [Unknown]
  - Pain in extremity [Unknown]
  - Arthralgia [Unknown]
  - Blood glucose increased [Unknown]
  - Pelvic misalignment [Unknown]
  - Meniscus injury [Unknown]
  - Dry mouth [Unknown]
  - Gait disturbance [Unknown]
  - Neutrophil count decreased [Unknown]
  - Bursitis [Unknown]

NARRATIVE: CASE EVENT DATE: 20220615
